FAERS Safety Report 5152933-9 (Version None)
Quarter: 2006Q4

REPORT INFORMATION
  Report Type: 
  Country: None (occurrence: None)
  Receive Date: 20061117
  Receipt Date: 20061102
  Transmission Date: 20070319
  Serious: Yes (Other)
  Sender: FDA-Public Use
  Company Number: PHBS2006JP17235

PATIENT

DRUGS (2)
  1. DIOVAN [Suspect]
     Route: 048
  2. NORVASC [Concomitant]
     Route: 048

REACTIONS (1)
  - SYNCOPE [None]
